FAERS Safety Report 4895419-9 (Version None)
Quarter: 2006Q1

REPORT INFORMATION
  Report Type: 
  Country: None (occurrence: None)
  Receive Date: 20060130
  Receipt Date: 20051007
  Transmission Date: 20060701
  Serious: No
  Sender: FDA-Public Use
  Company Number: US-GLAXOSMITHKLINE-A0577588A

PATIENT
  Age: 34 Year
  Sex: Male

DRUGS (6)
  1. COMBIVIR [Suspect]
     Indication: HIV INFECTION
     Dosage: 1TAB TWICE PER DAY
     Route: 048
  2. NORVIR [Concomitant]
  3. CRIXIVAN [Concomitant]
  4. ATENOLOL [Concomitant]
  5. ZANTAC [Concomitant]
  6. M.V.I. [Concomitant]

REACTIONS (2)
  - GINGIVAL PAIN [None]
  - SKIN DISCOLOURATION [None]
